FAERS Safety Report 5110131-9 (Version None)
Quarter: 2006Q3

REPORT INFORMATION
  Report Type: 
  Country: None (occurrence: None)
  Receive Date: 20060918
  Receipt Date: 20060905
  Transmission Date: 20061208
  Serious: Yes (Death, Hospitalization)
  Sender: FDA-Public Use
  Company Number: WAES 0608FRA00022

PATIENT
  Age: 67 Year
  Sex: Male

DRUGS (15)
  1. CANCIDAS [Suspect]
     Indication: SYSTEMIC CANDIDA
     Dosage: IV; SEE IMAGE
     Route: 042
     Dates: start: 20060626, end: 20060626
  2. CANCIDAS [Suspect]
     Indication: SYSTEMIC CANDIDA
     Dosage: IV; SEE IMAGE
     Route: 042
     Dates: start: 20060627, end: 20060726
  3. AMIKACIN SULFATE [Concomitant]
  4. AMOXICILLIN [Concomitant]
  5. AMPHOTERICIN B [Concomitant]
  6. ASPIRIN [Concomitant]
  7. BISOPROLOL FUMARATE [Concomitant]
  8. CASPOFUNGIN ACETATE [Concomitant]
  9. DIGOXIN [Concomitant]
  10. FUROSEMIDE [Concomitant]
  11. NPH INSULIN [Concomitant]
  12. PIPERACILLIN SODIUM (+) TAZOBACTAM SODIU [Concomitant]
  13. POTASSIUM CHLORIDE [Concomitant]
  14. RAMIPRIL [Concomitant]
  15. VORICONAZOLE [Concomitant]

REACTIONS (14)
  - ARTERIOSCLEROSIS [None]
  - ASPERGILLOSIS [None]
  - BRONCHOPNEUMOPATHY [None]
  - CARDIOMYOPATHY [None]
  - CELLULITIS [None]
  - DISEASE RECURRENCE [None]
  - HEPATIC STEATOSIS [None]
  - HEPATOMEGALY [None]
  - PERICARDIAL EFFUSION [None]
  - PERITONEAL EFFUSION [None]
  - PLEURAL EFFUSION [None]
  - SEPSIS [None]
  - SPLENOMEGALY [None]
  - SYSTEMIC CANDIDA [None]
